FAERS Safety Report 17855388 (Version 2)
Quarter: 2020Q2

REPORT INFORMATION
  Report Type: Spontaneous
  Country: JP (occurrence: JP)
  Receive Date: 20200603
  Receipt Date: 20200618
  Transmission Date: 20200714
  Serious: Yes (Hospitalization, Other)
  Sender: FDA-Public Use
  Company Number: JP-PFIZER INC-2020215090

PATIENT
  Age: 6 Year
  Sex: Female
  Weight: 19 kg

DRUGS (4)
  1. CEFTRIAXONE SODIUM PFIZER [Suspect]
     Active Substance: CEFTRIAXONE SODIUM
     Dosage: 100 MG/KG, DAILY
     Route: 041
     Dates: start: 20190819, end: 20190825
  2. CLINDAMYCIN PHOSPHATE. [Suspect]
     Active Substance: CLINDAMYCIN PHOSPHATE
     Indication: ABSCESS NECK
     Dosage: 25 MG/KG, DAILY
     Route: 041
     Dates: start: 20190819, end: 20190825
  3. CEFTRIAXONE SODIUM PFIZER [Suspect]
     Active Substance: CEFTRIAXONE SODIUM
     Indication: ABSCESS NECK
     Dosage: 50 MG/KG, DAILY
     Route: 041
     Dates: start: 20190816, end: 20190818
  4. BIO-THREE [Concomitant]
     Active Substance: HERBALS
     Indication: DYSBIOSIS
     Dosage: 0.4 G, 3X/DAY
     Route: 048
     Dates: start: 20190820, end: 20190830

REACTIONS (4)
  - Disease progression [Recovering/Resolving]
  - Drug eruption [Recovering/Resolving]
  - Pyrexia [Recovering/Resolving]
  - Neck pain [Recovering/Resolving]

NARRATIVE: CASE EVENT DATE: 20190819
